FAERS Safety Report 4661254-X (Version None)
Quarter: 2005Q2

REPORT INFORMATION
  Report Type: 
  Country: None (occurrence: None)
  Receive Date: 20050429
  Receipt Date: 20040616
  Transmission Date: 20051028
  Serious: Yes (Other)
  Sender: FDA-Public Use
  Company Number: HQWYE509617JUN04

PATIENT
  Age: 42 Year
  Sex: Female
  Weight: 56.75 kg

DRUGS (1)
  1. PROTONIX [Suspect]
     Indication: SMALL INTESTINAL PERFORATION
     Dosage: INTRAVENOUS
     Route: 042
     Dates: end: 20040615

REACTIONS (2)
  - HEPATIC ENZYME INCREASED [None]
  - PANCREATITIS [None]
